FAERS Safety Report 21231160 (Version 2)
Quarter: 2022Q3

REPORT INFORMATION
  Report Type: Spontaneous
  Country: AU (occurrence: None)
  Receive Date: 20220819
  Receipt Date: 20220822
  Transmission Date: 20221026
  Serious: Yes (Other)
  Sender: FDA-Public Use
  Company Number: AU-ROCHE-3162369

PATIENT
  Sex: Male
  Weight: 85 kg

DRUGS (12)
  1. RITUXIMAB [Suspect]
     Active Substance: RITUXIMAB
     Indication: Follicular lymphoma
     Dosage: 1ST SYSTEMIC TREATMENT (R-CHOP), COMPLETE REMISSION
     Route: 065
     Dates: start: 20120601, end: 20121101
  2. RITUXIMAB [Suspect]
     Active Substance: RITUXIMAB
     Dosage: 3RD SYSTEMIC TREATMENT, RITUXIMAB MONOTHERAPY WEEKLY, PROGRESSIVE DISEASE
     Route: 065
     Dates: start: 20220601, end: 20220701
  3. GAZYVA [Suspect]
     Active Substance: OBINUTUZUMAB
     Indication: Follicular lymphoma
     Dosage: 2ND SYSTEMIC TREATMENT (BENDAMUSTINE + OBINUTUZUMAB), COMPLETE REMISSION
     Route: 042
     Dates: start: 20190701, end: 20191201
  4. CYCLOPHOSPHAMIDE [Suspect]
     Active Substance: CYCLOPHOSPHAMIDE
     Indication: Follicular lymphoma
     Dosage: 1ST SYSTEMIC TREATMENT (R-CHOP), COMPLETE REMISSION
     Route: 065
     Dates: start: 20120601, end: 20121101
  5. DOXORUBICIN HYDROCHLORIDE [Suspect]
     Active Substance: DOXORUBICIN HYDROCHLORIDE
     Indication: Follicular lymphoma
     Dosage: 1ST SYSTEMIC TREATMENT (R-CHOP), COMPLETE REMISSION
     Route: 065
     Dates: start: 20120601, end: 20121101
  6. VINCRISTINE [Suspect]
     Active Substance: VINCRISTINE
     Indication: Follicular lymphoma
     Dosage: 1ST SYSTEMIC TREATMENT (R-CHOP), COMPLETE REMISSION
     Route: 065
     Dates: start: 20120601, end: 20121101
  7. PREDNISONE [Suspect]
     Active Substance: PREDNISONE
     Indication: Follicular lymphoma
     Dosage: 1ST SYSTEMIC TREATMENT (R-CHOP), COMPLETE REMISSION
     Route: 065
     Dates: start: 20120601, end: 20121101
  8. BENDAMUSTINE [Suspect]
     Active Substance: BENDAMUSTINE
     Indication: Follicular lymphoma
     Dosage: 2ND SYSTEMIC TREATMENT (BENDAMUSTINE + OBINUTUZUMAB), COMPLETE REMISSION
     Route: 065
     Dates: start: 20190701, end: 20191201
  9. LEVOTHYROXINE [Concomitant]
     Active Substance: LEVOTHYROXINE
  10. VITAMIN D NOS [Concomitant]
     Active Substance: VITAMIN D NOS
     Dosage: VIT D 2000 DAILY
  11. DEXAMETHASONE [Concomitant]
     Active Substance: DEXAMETHASONE
  12. VALACYCLOVIR HYDROCHLORIDE [Concomitant]
     Active Substance: VALACYCLOVIR HYDROCHLORIDE

REACTIONS (1)
  - Disease progression [Unknown]
